FAERS Safety Report 7755519-2 (Version None)
Quarter: 2011Q3

REPORT INFORMATION
  Report Type: 
  Country: None (occurrence: None)
  Receive Date: 20110914
  Receipt Date: 20110831
  Transmission Date: 20111222
  Serious: Yes (Death)
  Sender: FDA-Public Use
  Company Number: JPI-P-016042

PATIENT
  Age: 70 Year
  Sex: Male

DRUGS (11)
  1. MIRTAZAPINE [Concomitant]
  2. FOSINOPRIL SODIUM [Concomitant]
  3. METOPROLOL TARTRATE [Concomitant]
  4. ATORVASTATIN CALCIUM [Concomitant]
  5. TAMSULOSIN HYDROCHLORIDE [Concomitant]
  6. ASPIRIN [Concomitant]
  7. XYREM [Suspect]
     Indication: INSOMNIA
     Dosage: 4.5 GM (2.25 GM,2 IN 1 D),ORAL, 7.5 GM (3.75 GM,2 IN 1 D),ORAL
     Route: 048
     Dates: start: 20110310, end: 20110601
  8. XYREM [Suspect]
     Indication: INSOMNIA
     Dosage: 4.5 GM (2.25 GM,2 IN 1 D),ORAL, 7.5 GM (3.75 GM,2 IN 1 D),ORAL
     Route: 048
     Dates: start: 20110207, end: 20110101
  9. PANTOPRAZOLE [Concomitant]
  10. DULOXETINE HYDROCHLORIDE [Concomitant]
  11. ARIPIPRAZOLE [Concomitant]

REACTIONS (3)
  - PRURITUS [None]
  - PULMONARY EMBOLISM [None]
  - BURNING SENSATION [None]
